FAERS Safety Report 5278385-6 (Version None)
Quarter: 2007Q1

REPORT INFORMATION
  Report Type: 
  Country: None (occurrence: None)
  Receive Date: 20070322
  Receipt Date: 20070305
  Transmission Date: 20070707
  Serious: Yes (Other)
  Sender: FDA-Public Use
  Company Number: WWWISSUE-60

PATIENT
  Sex: Female

DRUGS (1)
  1. ZESTRIL [Suspect]
     Dates: start: 20070222, end: 20070227

REACTIONS (4)
  - CHOKING [None]
  - COUGH [None]
  - DYSPNOEA [None]
  - PHARYNGEAL OEDEMA [None]
